FAERS Safety Report 15378289 (Version 2)
Quarter: 2018Q4

REPORT INFORMATION
  Report Type: Spontaneous
  Country: US (occurrence: US)
  Receive Date: 20180913
  Receipt Date: 20181026
  Transmission Date: 20190204
  Serious: No
  Sender: FDA-Public Use
  Company Number: US-SA-2018SA254254

PATIENT
  Age: 72 Year
  Sex: Male

DRUGS (1)
  1. ALLEGRA ALLERGY [Suspect]
     Active Substance: FEXOFENADINE HYDROCHLORIDE
     Indication: RASH
     Dosage: 2 DF, QD

REACTIONS (4)
  - Drug ineffective [Unknown]
  - Rash generalised [Unknown]
  - Rash [Unknown]
  - Irritability [Unknown]
